FAERS Safety Report 8171507-9 (Version None)
Quarter: 2012Q1

REPORT INFORMATION
  Report Type: 
  Country: None (occurrence: None)
  Receive Date: 20120228
  Receipt Date: 20120216
  Transmission Date: 20120608
  Serious: Yes (Death, Hospitalization)
  Sender: FDA-Public Use
  Company Number: CZ-ELI_LILLY_AND_COMPANY-CZ201202002838

PATIENT
  Age: 80 Year
  Sex: Male

DRUGS (13)
  1. CALTRATE PLUS [Concomitant]
  2. CORTICOSTEROID NOS [Concomitant]
     Indication: MYASTHENIA GRAVIS
  3. MESTINON [Concomitant]
  4. TANAKAN [Concomitant]
  5. GODASAL [Concomitant]
  6. GLUCOPHAGE [Concomitant]
  7. ORAL ANTIDIABETICS [Concomitant]
     Indication: TYPE 2 DIABETES MELLITUS
  8. OMEPRAZOLE [Concomitant]
  9. IMURAN [Concomitant]
     Dosage: UNK
     Dates: end: 20120101
  10. PRESTARIUM [Concomitant]
  11. PREDNISONE [Concomitant]
     Dosage: 5 MG, QD
     Dates: end: 20120101
  12. FORTEO [Suspect]
     Indication: OSTEOPOROSIS
     Dosage: 20 UG, QD
     Route: 058
     Dates: start: 20101013, end: 20120122
  13. HYPOTYLIN [Concomitant]

REACTIONS (2)
  - CEREBROVASCULAR ACCIDENT [None]
  - ADVERSE EVENT [None]
